FAERS Safety Report 5101943-6 (Version None)
Quarter: 2006Q3

REPORT INFORMATION
  Report Type: 
  Country: None (occurrence: None)
  Receive Date: 20060907
  Receipt Date: 20060830
  Transmission Date: 20061208
  Serious: Yes (Life-Threatening, Hospitalization, Other)
  Sender: FDA-Public Use
  Company Number: 2006105175

PATIENT
  Age: 37 Year
  Sex: Male

DRUGS (3)
  1. ZOLOFT [Suspect]
     Indication: DEPRESSION
     Dates: start: 20030101
  2. WELLBUTRIN [Concomitant]
  3. SEROTONIN (SEROTONIN) [Concomitant]

REACTIONS (4)
  - CEREBROVASCULAR ACCIDENT [None]
  - EUPHORIC MOOD [None]
  - MANIA [None]
  - WEIGHT DECREASED [None]
